FAERS Safety Report 21578933 (Version 1)
Quarter: 2022Q4

REPORT INFORMATION
  Report Type: Spontaneous
  Country: US (occurrence: US)
  Receive Date: 20221110
  Receipt Date: 20221110
  Transmission Date: 20230113
  Serious: No
  Sender: FDA-Public Use
  Company Number: US-SA-SAC20221104000280

PATIENT
  Sex: Male
  Weight: 163 kg

DRUGS (23)
  1. DUPIXENT [Suspect]
     Active Substance: DUPILUMAB
     Indication: Asthma
     Dosage: 300 MG, QOW
     Route: 058
  2. ASCORBIC ACID [Concomitant]
     Active Substance: ASCORBIC ACID
  3. VITAMIN D3 [Concomitant]
     Active Substance: CHOLECALCIFEROL
  4. TESTOSTERONE [Concomitant]
     Active Substance: TESTOSTERONE
  5. METHOCARBAMOL [Concomitant]
     Active Substance: METHOCARBAMOL
  6. BUDESONIDE [Concomitant]
     Active Substance: BUDESONIDE
  7. CORLANOR [Concomitant]
     Active Substance: IVABRADINE HYDROCHLORIDE
  8. TRELEGY ELLIPTA [Concomitant]
     Active Substance: FLUTICASONE FUROATE\UMECLIDINIUM BROMIDE\VILANTEROL TRIFENATATE
  9. EZETIMIBE [Concomitant]
     Active Substance: EZETIMIBE
  10. CARVEDILOL [Concomitant]
     Active Substance: CARVEDILOL
  11. MOMETASONE FUROATE [Concomitant]
     Active Substance: MOMETASONE FUROATE
  12. AZELASTINE HYDROCHLORIDE [Concomitant]
     Active Substance: AZELASTINE HYDROCHLORIDE
  13. PANTOPRAZOLE SODIUM [Concomitant]
     Active Substance: PANTOPRAZOLE SODIUM
  14. DOXYCYCLINE HYCLATE [Concomitant]
     Active Substance: DOXYCYCLINE HYCLATE
  15. LEVOCETIRIZINE DIHYDROCHLORIDE [Concomitant]
     Active Substance: LEVOCETIRIZINE DIHYDROCHLORIDE
  16. ALBUTEROL SULFATE [Concomitant]
     Active Substance: ALBUTEROL SULFATE
  17. DIGOXIN [Concomitant]
     Active Substance: DIGOXIN
  18. TADALAFIL [Concomitant]
     Active Substance: TADALAFIL
  19. PREDNISONE [Concomitant]
     Active Substance: PREDNISONE
  20. PRIVIGEN [Concomitant]
     Active Substance: HUMAN IMMUNOGLOBULIN G
  21. ENTRESTO [Concomitant]
     Active Substance: SACUBITRIL\VALSARTAN
  22. ELIQUIS [Concomitant]
     Active Substance: APIXABAN
  23. FUROSEMIDE [Concomitant]
     Active Substance: FUROSEMIDE

REACTIONS (1)
  - Infection [Unknown]
